FAERS Safety Report 13886458 (Version 1)
Quarter: 2017Q3

REPORT INFORMATION
  Report Type: Spontaneous
  Country: US (occurrence: US)
  Receive Date: 20170821
  Receipt Date: 20170821
  Transmission Date: 20171127
  Serious: No
  Sender: FDA-Public Use
  Company Number: US-ALLERGAN-1730359US

PATIENT
  Age: 67 Year
  Sex: Male

DRUGS (4)
  1. ANDRODERM [Suspect]
     Active Substance: TESTOSTERONE
     Indication: PRODUCT USED FOR UNKNOWN INDICATION
     Dosage: 1 DF, QD
     Route: 062
  2. VALSARTAN. [Concomitant]
     Active Substance: VALSARTAN
     Indication: HYPERTENSION
     Dosage: UNK
     Route: 048
  3. ANDROGEL [Concomitant]
     Active Substance: TESTOSTERONE
     Indication: PRODUCT USED FOR UNKNOWN INDICATION
     Dosage: UNK
     Route: 061
  4. AMLODIPINE [Concomitant]
     Active Substance: AMLODIPINE BESYLATE
     Indication: HYPERTENSION
     Dosage: UNK
     Route: 048

REACTIONS (8)
  - Skin lesion [Recovered/Resolved]
  - Administration site pain [Recovered/Resolved]
  - Administration site erythema [Not Recovered/Not Resolved]
  - Application site wound [Recovered/Resolved]
  - Administration site irritation [Not Recovered/Not Resolved]
  - Drug administered at inappropriate site [Unknown]
  - Administration site rash [Not Recovered/Not Resolved]
  - Administration site pruritus [Not Recovered/Not Resolved]
